FAERS Safety Report 7319173-6 (Version None)
Quarter: 2011Q1

REPORT INFORMATION
  Report Type: 
  Country: None (occurrence: None)
  Receive Date: 20110214
  Receipt Date: 20110201
  Transmission Date: 20110831
  Serious: Yes (Other)
  Sender: FDA-Public Use
  Company Number: 2011SP004906

PATIENT
  Age: 70 Year
  Sex: Male

DRUGS (1)
  1. REMERON [Suspect]
     Indication: DEPRESSION
     Dosage: (15 MG; QD; PO) (30 MG; QD; PO)
     Route: 048
     Dates: end: 20110101

REACTIONS (3)
  - PNEUMONIA [None]
  - ASPIRATION [None]
  - RESPIRATORY DEPRESSION [None]
